FAERS Safety Report 13184708 (Version 1)
Quarter: 2020Q3

REPORT INFORMATION
  Report Type: Report from Study
  Country: US (occurrence: US)
  Receive Date: 20170203
  Receipt Date: 20170203
  Transmission Date: 20201105
  Serious: Yes (Death)
  Sender: FDA-Public Use
  Company Number: US-US WORLDMEDS, LLC-USW201701-000135

PATIENT
  Age: 78 Year
  Sex: Male
  Weight: 58.9 kg

DRUGS (10)
  1. TESSALON [Concomitant]
     Active Substance: BENZONATATE
     Route: 048
  2. AZILECT [Concomitant]
     Active Substance: RASAGILINE MESYLATE
     Indication: PARKINSON^S DISEASE
     Dates: start: 2008
  3. RAZADYNE [Concomitant]
     Active Substance: GALANTAMINE HYDROBROMIDE
     Dates: start: 2008
  4. ZITHROMAX [Concomitant]
     Active Substance: AZITHROMYCIN DIHYDRATE
     Route: 048
  5. CLOZARIL [Concomitant]
     Active Substance: CLOZAPINE
     Dates: start: 2012
  6. SINEMET [Concomitant]
     Active Substance: CARBIDOPA\LEVODOPA
     Indication: PARKINSON^S DISEASE
     Dates: start: 2001
  7. ZOLOFT [Concomitant]
     Active Substance: SERTRALINE HYDROCHLORIDE
     Dates: start: 2010
  8. AZILECT [Concomitant]
     Active Substance: RASAGILINE MESYLATE
     Route: 048
  9. MYOBLOC [Suspect]
     Active Substance: RIMABOTULINUMTOXINB
     Indication: SALIVARY HYPERSECRETION
     Dates: start: 20160718
  10. MYOBLOC [Suspect]
     Active Substance: RIMABOTULINUMTOXINB
     Indication: PARKINSON^S DISEASE
     Dates: start: 20160418

REACTIONS (1)
  - Pneumonia [Fatal]

NARRATIVE: CASE EVENT DATE: 20170108
